FAERS Safety Report 20890757 (Version 2)
Quarter: 2022Q3

REPORT INFORMATION
  Report Type: Spontaneous
  Country: US (occurrence: US)
  Receive Date: 20220530
  Receipt Date: 20220818
  Transmission Date: 20221027
  Serious: Yes (Other)
  Sender: FDA-Public Use
  Company Number: US-Techdow-2022Techdow000021

PATIENT
  Age: 48 Year
  Sex: Male

DRUGS (1)
  1. HEPARIN SODIUM [Suspect]
     Active Substance: HEPARIN SODIUM
     Indication: Thrombosis prophylaxis
     Dosage: 7500U,EVERY 8 HOURS

REACTIONS (4)
  - Heparin-induced thrombocytopenia [Unknown]
  - Venous thrombosis [Unknown]
  - Arterial thrombosis [Unknown]
  - Compartment syndrome [Unknown]
